FAERS Safety Report 5424548-6 (Version None)
Quarter: 2007Q4

REPORT INFORMATION
  Report Type: 
  Country: None (occurrence: None)
  Receive Date: 20070822
  Receipt Date: 20070813
  Transmission Date: 20080405
  Serious: Yes (Hospitalization)
  Sender: FDA-Public Use
  Company Number: 062-20785-07080124

PATIENT
  Age: 68 Year
  Sex: Female

DRUGS (6)
  1. THALIDOMIDE [Suspect]
     Indication: MULTIPLE MYELOMA
     Dosage: 400 MG, 8 IN 1 D, ORAL
     Route: 048
     Dates: start: 20070521
  2. BONDRONAT (IBANDRONIC ACID) [Concomitant]
  3. LEVOTHYROXINE SODIUM [Concomitant]
  4. LISINOPRIL (LISINOPRILI) [Concomitant]
  5. SIMVABTA (SIMVASTATIN) [Concomitant]
  6. NOVALGIN (METAMIZOLE SODIUM) [Concomitant]

REACTIONS (1)
  - SYNCOPE [None]
